FAERS Safety Report 15155822 (Version 1)
Quarter: 2018Q3

REPORT INFORMATION
  Report Type: Spontaneous
  Country: DE (occurrence: DE)
  Receive Date: 20180717
  Receipt Date: 20180717
  Transmission Date: 20181010
  Serious: Yes (Other)
  Sender: FDA-Public Use
  Company Number: DE-US WORLDMEDS, LLC-STA_00018114

PATIENT
  Age: 60 Year
  Sex: Male
  Weight: 75 kg

DRUGS (9)
  1. APOMORPHINE HYDROCHLORIDE [Suspect]
     Active Substance: APOMORPHINE HYDROCHLORIDE
     Indication: PARKINSON^S DISEASE
     Route: 058
     Dates: start: 20150423
  2. BISOPROLOL 5 [Concomitant]
     Active Substance: BISOPROLOL
  3. CLOZAPIN 25 [Concomitant]
  4. MADOPAR DEPOT [Concomitant]
     Active Substance: BENSERAZIDE HYDROCHLORIDE\LEVODOPA
  5. MIRTAZAPIN 30 [Concomitant]
     Active Substance: MIRTAZAPINE
  6. FOLIC ACID. [Concomitant]
     Active Substance: FOLIC ACID
  7. L?THYROXIN 25 [Concomitant]
  8. TORASEMID 5 [Concomitant]
  9. LEVODOPA / BENZERAZID [Concomitant]

REACTIONS (1)
  - Injection site necrosis [Not Recovered/Not Resolved]

NARRATIVE: CASE EVENT DATE: 20160107
